FAERS Safety Report 6518839-5 (Version None)
Quarter: 2009Q4

REPORT INFORMATION
  Report Type: 
  Country: None (occurrence: None)
  Receive Date: 20091228
  Receipt Date: 20091221
  Transmission Date: 20100525
  Serious: Yes (Death)
  Sender: FDA-Public Use
  Company Number: JP-JNJFOC-20091103994

PATIENT
  Sex: Female

DRUGS (13)
  1. RISPERDAL CONSTA [Suspect]
     Indication: SCHIZOPHRENIA
     Route: 030
  2. IMPROMEN [Suspect]
     Indication: SCHIZOPHRENIA
     Route: 048
  3. ZOTEPINE [Suspect]
     Indication: SCHIZOPHRENIA
     Route: 048
  4. LEVOMEPROMAZINE MALEATE [Suspect]
     Indication: SCHIZOPHRENIA
     Route: 048
  5. LEVOMEPROMAZINE MALEATE [Suspect]
     Dosage: FINE GRAINS
     Route: 048
  6. RONFLEMAN [Suspect]
     Indication: DRUG USE FOR UNKNOWN INDICATION
     Route: 048
  7. FLUNITRAZEPAM [Suspect]
     Indication: DRUG USE FOR UNKNOWN INDICATION
     Route: 065
  8. DEPAKENE [Suspect]
     Indication: SCHIZOPHRENIA
     Route: 048
  9. LONASEN [Suspect]
     Indication: SCHIZOPHRENIA
     Route: 048
  10. LORAZEPAM [Suspect]
     Indication: SCHIZOPHRENIA
     Route: 048
  11. ESTAZOLAM [Suspect]
     Indication: SCHIZOPHRENIA
     Route: 048
  12. AMARYL [Suspect]
     Indication: DIABETES MELLITUS
     Route: 048
  13. LIVALO [Suspect]
     Indication: HYPERLIPIDAEMIA
     Route: 048

REACTIONS (3)
  - MOOD SWINGS [None]
  - MYOCARDIAL INFARCTION [None]
  - SUDDEN DEATH [None]
